FAERS Safety Report 24715571 (Version 1)
Quarter: 2024Q4

REPORT INFORMATION
  Report Type: Spontaneous
  Country: TR (occurrence: TR)
  Receive Date: 20241210
  Receipt Date: 20241210
  Transmission Date: 20250115
  Serious: Yes (Life-Threatening, Hospitalization)
  Sender: ABBVIE
  Company Number: TR-ABBVIE-6038909

PATIENT
  Age: 51 Year
  Sex: Female
  Weight: 92 kg

DRUGS (2)
  1. HUMIRA [Suspect]
     Active Substance: ADALIMUMAB
     Indication: Ankylosing spondylitis
     Route: 058
     Dates: start: 20230615, end: 20231103
  2. SECUKINUMAB [Suspect]
     Active Substance: SECUKINUMAB
     Indication: Ankylosing spondylitis
     Route: 058
     Dates: start: 20220122, end: 20230615

REACTIONS (3)
  - Vaginal haemorrhage [Recovering/Resolving]
  - Uterine cancer [Recovering/Resolving]
  - Endometrial cancer [Recovering/Resolving]

NARRATIVE: CASE EVENT DATE: 20231101
